FAERS Safety Report 18765104 (Version 1)
Quarter: 2021Q1

REPORT INFORMATION
  Report Type: Report from Study
  Country: CA (occurrence: CA)
  Receive Date: 20210120
  Receipt Date: 20210120
  Transmission Date: 20210419
  Serious: Yes (Other)
  Sender: FDA-Public Use
  Company Number: CA-PFIZER INC-2021024742

PATIENT
  Sex: Male

DRUGS (9)
  1. AZATHIOPRINE. [Concomitant]
     Active Substance: AZATHIOPRINE
     Dosage: UNK
     Route: 065
  2. BENADRYL [Concomitant]
     Active Substance: DIPHENHYDRAMINE HYDROCHLORIDE
     Indication: PREMEDICATION
     Dosage: 50 MG
     Route: 048
  3. PENICILLIN NOS [Suspect]
     Active Substance: PENICILLIN
     Dosage: UNK
     Route: 065
  4. PREDNISONE. [Concomitant]
     Active Substance: PREDNISONE
     Dosage: UNK
  5. RANITIDINE. [Concomitant]
     Active Substance: RANITIDINE
     Dosage: UNK
     Route: 065
  6. RITUXIMAB. [Suspect]
     Active Substance: RITUXIMAB
     Indication: ENCEPHALITIS AUTOIMMUNE
     Dosage: UNK
     Route: 041
  7. TYLENOL [Concomitant]
     Active Substance: ACETAMINOPHEN
     Indication: PREMEDICATION
     Dosage: 650 MG
     Route: 048
  8. VALPROIC ACID. [Concomitant]
     Active Substance: VALPROIC ACID
     Dosage: UNK
     Route: 065
  9. METHYLPREDNISOLONE. [Concomitant]
     Active Substance: METHYLPREDNISOLONE
     Indication: PREMEDICATION
     Dosage: 100 MG
     Route: 042

REACTIONS (2)
  - Drug hypersensitivity [Recovered/Resolved]
  - Seizure [Recovered/Resolved]
